FAERS Safety Report 8811445 (Version 1)
Quarter: 2012Q4

REPORT INFORMATION
  Report Type: Report from Study
  Country: IN (occurrence: US)
  Receive Date: 20120927
  Receipt Date: 20120927
  Transmission Date: 20130627
  Serious: Yes (Hospitalization, Other)
  Sender: FDA-Public Use
  Company Number: US-BRISTOL-MYERS SQUIBB COMPANY-15088743

PATIENT
  Age: 63 Year
  Sex: Male
  Weight: 131 kg

DRUGS (19)
  1. IPILIMUMAB [Suspect]
     Indication: MALIGNANT MELANOMA
     Dosage: interrupted on 28Apr2010,restarted on 04Jan11:1214 microcurie.No of course:08.
     Route: 042
     Dates: start: 200701
  2. ATARAX [Concomitant]
     Dates: start: 200905
  3. ZANTAC [Concomitant]
     Dates: start: 200905
  4. LOMOTIL [Concomitant]
     Dates: start: 20100428, end: 20100428
  5. NAPROSYN [Concomitant]
     Dosage: BID
     Route: 048
     Dates: start: 20100428, end: 20100428
  6. BUDESONIDE [Concomitant]
     Route: 048
     Dates: start: 20100428, end: 20100428
  7. ASPIRIN [Concomitant]
     Route: 048
  8. METOPROLOL [Concomitant]
     Route: 048
  9. ATACAND [Concomitant]
     Route: 048
  10. COREG [Concomitant]
     Route: 048
  11. LOTENSIN [Concomitant]
     Route: 048
  12. FUROSEMIDE [Concomitant]
     Route: 048
  13. ALLOPURINOL [Concomitant]
     Indication: GOUT
     Route: 048
  14. UROXATRAL [Concomitant]
     Indication: BENIGN PROSTATIC HYPERPLASIA
     Route: 048
  15. ALLEGRA-D [Concomitant]
     Route: 048
  16. ALLEGRA-D [Concomitant]
     Dosage: 12 hour one
     Route: 048
  17. KLOR-CON [Concomitant]
  18. MAGNESIUM [Concomitant]
     Route: 048
  19. MULTIVITAMIN [Concomitant]
     Dosage: tablet
     Route: 048

REACTIONS (2)
  - Malignant melanoma [Recovered/Resolved]
  - Infusion related reaction [Recovered/Resolved]
